APPROVED DRUG PRODUCT: CLARINEX
Active Ingredient: DESLORATADINE
Strength: 2.5MG **Federal Register determination that product was not discontinued or withdrawn for safety or effectiveness reasons**
Dosage Form/Route: TABLET, ORALLY DISINTEGRATING;ORAL
Application: N021312 | Product #002
Applicant: ORGANON LLC A SUB OF ORGANON AND CO
Approved: Jul 14, 2005 | RLD: Yes | RS: No | Type: DISCN